FAERS Safety Report 8288615-4 (Version None)
Quarter: 2012Q2

REPORT INFORMATION
  Report Type: 
  Country: None (occurrence: None)
  Receive Date: 20120416
  Receipt Date: 20120320
  Transmission Date: 20120825
  Serious: Yes (Hospitalization)
  Sender: FDA-Public Use
  Company Number: PHHO2010BR15281

PATIENT
  Sex: Male
  Weight: 71.6 kg

DRUGS (6)
  1. LISADOR [Concomitant]
     Indication: HEADACHE
     Dosage: UNK
  2. LISADOR [Concomitant]
     Indication: MUSCULOSKELETAL CHEST PAIN
  3. AFINITOR [Suspect]
     Indication: METASTATIC RENAL CELL CARCINOMA
     Dosage: 5 MG, UNK
     Route: 048
     Dates: start: 20091001, end: 20100529
  4. OMEPRAZOLE [Concomitant]
     Indication: PAIN PROPHYLAXIS
     Dosage: 10 MG, QD
     Route: 048
     Dates: start: 20100129
  5. AFINITOR [Suspect]
     Dosage: 10 MG, QD
     Route: 048
     Dates: start: 20091001, end: 20110329
  6. AVASTIN [Suspect]
     Indication: METASTATIC RENAL CELL CARCINOMA
     Dosage: 10 MG/KG, QW
     Dates: start: 20091001

REACTIONS (3)
  - HEPATOTOXICITY [None]
  - JAUNDICE [None]
  - PNEUMONIA [None]
